FAERS Safety Report 17002130 (Version 1)
Quarter: 2019Q4

REPORT INFORMATION
  Report Type: Spontaneous
  Country: US (occurrence: US)
  Receive Date: 20191106
  Receipt Date: 20191106
  Transmission Date: 20200122
  Serious: Yes (Hospitalization)
  Sender: FDA-Public Use
  Company Number: US-FERRINGPH-2019FE07101

PATIENT

DRUGS (1)
  1. DDAVP [Suspect]
     Active Substance: DESMOPRESSIN ACETATE
     Indication: DIABETES INSIPIDUS
     Dosage: UNK
     Route: 045
     Dates: start: 2019

REACTIONS (4)
  - Blood sodium increased [Not Recovered/Not Resolved]
  - Intentional product use issue [Unknown]
  - Dehydration [Not Recovered/Not Resolved]
  - Product quality issue [Unknown]

NARRATIVE: CASE EVENT DATE: 2019
